FAERS Safety Report 18563857 (Version 1)
Quarter: 2020Q4

REPORT INFORMATION
  Report Type: Spontaneous
  Country: US (occurrence: US)
  Receive Date: 20201005
  Receipt Date: 20201005
  Transmission Date: 20210114
  Serious: Yes (Other)
  Sender: FDA-Public Use
  Company Number: None

PATIENT
  Age: 4 Decade
  Sex: Male

DRUGS (4)
  1. LIANHUAQINGWEN [Suspect]
     Active Substance: HERBALS
     Route: 048
  2. LOPINAVIR-RITONAVIR [Suspect]
     Active Substance: LOPINAVIR\RITONAVIR
     Dosage: ?          OTHER DOSE:400/100MG;?
     Route: 048
  3. INTERFERON [Suspect]
     Active Substance: INTERFERON
     Indication: COVID-19
     Dosage: ?          OTHER DOSE:6.0  X 106 IU;OTHER ROUTE:AEROSOL?
  4. UMIFENOVIR. [Suspect]
     Active Substance: UMIFENOVIR
     Route: 048

REACTIONS (1)
  - Product use in unapproved indication [None]

NARRATIVE: CASE EVENT DATE: 2020
